FAERS Safety Report 7503260-3 (Version None)
Quarter: 2011Q2

REPORT INFORMATION
  Report Type: 
  Country: None (occurrence: None)
  Receive Date: 20110525
  Receipt Date: 20110211
  Transmission Date: 20111010
  Serious: No
  Sender: FDA-Public Use
  Company Number: A0913138A

PATIENT
  Age: 16 Year
  Sex: Female

DRUGS (3)
  1. BACTROBAN [Suspect]
     Indication: STAPHYLOCOCCAL INFECTION
     Dosage: 1APP TWICE PER DAY
     Route: 061
     Dates: start: 20110205, end: 20110205
  2. NO CONCURRENT MEDICATION [Concomitant]
  3. BACTRIM [Concomitant]
     Route: 048

REACTIONS (7)
  - APHTHOUS STOMATITIS [None]
  - LOCAL SWELLING [None]
  - URTICARIA [None]
  - SWELLING [None]
  - ERYTHEMA [None]
  - RASH [None]
  - HYPERSENSITIVITY [None]
